FAERS Safety Report 8348921-1 (Version None)
Quarter: 2012Q2

REPORT INFORMATION
  Report Type: 
  Country: None (occurrence: None)
  Receive Date: 20120508
  Receipt Date: 20120426
  Transmission Date: 20120825
  Serious: Yes (Hospitalization, Other)
  Sender: FDA-Public Use
  Company Number: AUR-APL-2012-01007

PATIENT
  Age: 56 Year
  Sex: Female
  Weight: 83.77 kg

DRUGS (15)
  1. METOPROLOL TARTRATE [Suspect]
     Indication: HYPERTENSION
     Dosage: 25 MG (25 MG, 1 IN 1 D), ORAL
     Route: 048
     Dates: start: 20110916
  2. BENADRYL [Concomitant]
  3. MS CONTIN [Concomitant]
  4. AXITINIB (AXITINIB) [Suspect]
     Indication: METASTATIC MALIGNANT MELANOMA
     Dosage: 10 MG (5 MG, 2 IN 1 D), ORAL; 6 MG (3 MG, 2 IN 1 D), ORAL
     Route: 048
     Dates: start: 20110628
  5. AXITINIB (AXITINIB) [Suspect]
     Indication: METASTATIC MALIGNANT MELANOMA
     Dosage: 10 MG (5 MG, 2 IN 1 D), ORAL; 6 MG (3 MG, 2 IN 1 D), ORAL
     Route: 048
     Dates: start: 20111130
  6. ZOFRAN [Concomitant]
  7. WELLBUTRIN [Concomitant]
  8. CARBOPLATIN [Suspect]
     Indication: METASTATIC MALIGNANT MELANOMA
     Dosage: (670 MG), INTRAVENOUS; 26.9048 MG (565 MG, 1 IN 3 WK), INTRAVENOUS
     Route: 042
     Dates: start: 20110922, end: 20110922
  9. CARBOPLATIN [Suspect]
     Indication: METASTATIC MALIGNANT MELANOMA
     Dosage: (670 MG), INTRAVENOUS; 26.9048 MG (565 MG, 1 IN 3 WK), INTRAVENOUS
     Route: 042
     Dates: start: 20111020, end: 20111020
  10. PACLITAXEL [Suspect]
     Indication: METASTATIC MALIGNANT MELANOMA
     Dosage: (300 MG), INTRAVENOUS; 10.2381 MG (215 MG, 1 IN 3 WK), INTRAVENOUS
     Route: 042
     Dates: start: 20110922, end: 20110922
  11. PACLITAXEL [Suspect]
     Indication: METASTATIC MALIGNANT MELANOMA
     Dosage: (300 MG), INTRAVENOUS; 10.2381 MG (215 MG, 1 IN 3 WK), INTRAVENOUS
     Route: 042
     Dates: start: 20111020, end: 20111020
  12. PREMPRO [Suspect]
     Indication: ARTHRITIS
     Dosage: 0.625MG/2.5MG (1 IN 1 D), ORAL;
     Route: 048
     Dates: start: 20070101
  13. CELECOXIB [Suspect]
     Indication: ARTHRITIS
     Dosage: 200 MG (200 MG, 1 IN 1 D), ORAL; 200 MG (200 MG, 1 IN 1 D), ORAL
     Route: 048
     Dates: start: 20070101, end: 20111101
  14. MEGACE [Suspect]
     Indication: DECREASED APPETITE
     Dosage: 5 CC (5, 1 IN 1 D), ORAL; 5 CC (5, 1 IN 1 D), ORAL
     Route: 048
     Dates: start: 20110927
  15. MEGACE [Suspect]
     Indication: DECREASED APPETITE
     Dosage: 5 CC (5, 1 IN 1 D), ORAL; 5 CC (5, 1 IN 1 D), ORAL
     Route: 048
     Dates: start: 20111128

REACTIONS (6)
  - UTERINE LEIOMYOMA [None]
  - HYPOKALAEMIA [None]
  - GASTROOESOPHAGEAL REFLUX DISEASE [None]
  - DECREASED APPETITE [None]
  - VAGINAL HAEMORRHAGE [None]
  - ANAEMIA [None]
